FAERS Safety Report 5700724-X (Version None)
Quarter: 2008Q2

REPORT INFORMATION
  Report Type: 
  Country: None (occurrence: None)
  Receive Date: 20080410
  Receipt Date: 20080124
  Transmission Date: 20081010
  Serious: No
  Sender: FDA-Public Use
  Company Number: A0705197A

PATIENT
  Sex: Female

DRUGS (2)
  1. TYKERB [Suspect]
     Route: 048
  2. ZOFRAN [Suspect]
     Route: 048

REACTIONS (2)
  - DRUG INEFFECTIVE [None]
  - VOMITING [None]
